FAERS Safety Report 6889943-7 (Version None)
Quarter: 2010Q3

REPORT INFORMATION
  Report Type: 
  Country: None (occurrence: None)
  Receive Date: 20100730
  Receipt Date: 20080617
  Transmission Date: 20110219
  Serious: No
  Sender: FDA-Public Use
  Company Number: US-PFIZER INC-2008050721

PATIENT
  Sex: Female
  Weight: 77.272 kg

DRUGS (10)
  1. LIPITOR [Suspect]
     Indication: BLOOD CHOLESTEROL INCREASED
     Route: 048
     Dates: start: 20080501
  2. EVENING PRIMROSE OIL [Concomitant]
  3. VITAMIN E [Concomitant]
  4. FISH OIL [Concomitant]
  5. HYZAAR [Concomitant]
     Indication: HYPERTENSION
  6. SYNTHROID [Concomitant]
     Indication: HYPERTHYROIDISM
  7. CALCIUM [Concomitant]
  8. VITAMIN D [Concomitant]
  9. MULTI-VITAMINS [Concomitant]
  10. BIOTIN [Concomitant]

REACTIONS (1)
  - ABNORMAL FAECES [None]
